FAERS Safety Report 19678105 (Version 2)
Quarter: 2021Q3

REPORT INFORMATION
  Report Type: Report from Study
  Country: US (occurrence: US)
  Receive Date: 20210809
  Receipt Date: 20210820
  Transmission Date: 20211014
  Serious: Yes (Death, Life-Threatening, Hospitalization)
  Sender: FDA-Public Use
  Company Number: US-EXELIXIS-CABO-21042459

PATIENT
  Age: 20 Year
  Sex: Female

DRUGS (6)
  1. COMETRIQ [Suspect]
     Active Substance: CABOZANTINIB S-MALATE
     Indication: ADRENAL GLAND CANCER
     Dosage: 60 MG, ONCE DAILY EXCEPT ON THURSDAY
     Route: 048
     Dates: start: 20210526, end: 20210702
  2. METHADONE [Concomitant]
     Active Substance: METHADONE HYDROCHLORIDE
  3. OXYCODONE [Concomitant]
     Active Substance: OXYCODONE
     Indication: PAIN
  4. ATIVAN [Concomitant]
     Active Substance: LORAZEPAM
     Indication: VOMITING
  5. ATIVAN [Concomitant]
     Active Substance: LORAZEPAM
     Indication: NAUSEA
  6. BACTRIM [Concomitant]
     Active Substance: SULFAMETHOXAZOLE\TRIMETHOPRIM

REACTIONS (10)
  - Cerebral haemorrhage [Fatal]
  - Malignant neoplasm progression [Fatal]
  - Hypertension [Not Recovered/Not Resolved]
  - Inappropriate schedule of product administration [Unknown]
  - Blood bilirubin increased [Not Recovered/Not Resolved]
  - Thrombocytopenia [Not Recovered/Not Resolved]
  - Posterior reversible encephalopathy syndrome [Fatal]
  - Prothrombin time prolonged [Recovered/Resolved]
  - Blood creatinine increased [Not Recovered/Not Resolved]
  - Off label use [Unknown]

NARRATIVE: CASE EVENT DATE: 20210526
